FAERS Safety Report 7132681-6 (Version None)
Quarter: 2010Q4

REPORT INFORMATION
  Report Type: 
  Country: None (occurrence: None)
  Receive Date: 20101130
  Receipt Date: 20101130
  Transmission Date: 20110411
  Serious: Yes (Other)
  Sender: FDA-Public Use
  Company Number: None

PATIENT
  Age: 62 Year
  Sex: Male
  Weight: 83.3 kg

DRUGS (2)
  1. REGADENOSON [Suspect]
     Indication: DIABETES MELLITUS
     Dosage: 400 MCG ONCE IV
     Route: 042
     Dates: start: 20100922, end: 20100922
  2. REGADENOSON [Suspect]
     Indication: EXERCISE TOLERANCE DECREASED
     Dosage: 400 MCG ONCE IV
     Route: 042
     Dates: start: 20100922, end: 20100922

REACTIONS (2)
  - NODAL RHYTHM [None]
  - SINUS ARREST [None]
